FAERS Safety Report 4333030-9 (Version None)
Quarter: 2004Q2

REPORT INFORMATION
  Report Type: 
  Country: None (occurrence: None)
  Receive Date: 20040405
  Receipt Date: 20040405
  Transmission Date: 20050107
  Serious: Yes (Other)
  Sender: FDA-Public Use
  Company Number: None

PATIENT
  Sex: Female
  Weight: 58.9676 kg

DRUGS (2)
  1. DEXTROAMPHETAMINE SULFATE CAPSULE (BARR LAB) [Suspect]
     Indication: ATTENTION DEFICIT/HYPERACTIVITY DISORDER
     Dosage: 15 MG ONE PO Q AM
     Route: 048
     Dates: start: 20040208, end: 20040308
  2. . [Concomitant]

REACTIONS (4)
  - DISTURBANCE IN ATTENTION [None]
  - IRRITABILITY [None]
  - MOOD ALTERED [None]
  - PHARMACEUTICAL PRODUCT COMPLAINT [None]
